FAERS Safety Report 15001827 (Version 1)
Quarter: 2018Q2

REPORT INFORMATION
  Report Type: Spontaneous
  Country: ES (occurrence: ES)
  Receive Date: 20180612
  Receipt Date: 20180612
  Transmission Date: 20180711
  Serious: Yes (Hospitalization)
  Sender: FDA-Public Use
  Company Number: ES-TEVA-2018-ES-906413

PATIENT
  Age: 58 Year
  Sex: Female

DRUGS (7)
  1. ATORVASTATINA [Concomitant]
     Active Substance: ATORVASTATIN
     Route: 065
     Dates: start: 20170920
  2. CAFINITRINA [Concomitant]
     Route: 065
     Dates: start: 20170919
  3. LEVETIRACETAM (1167A) [Suspect]
     Active Substance: LEVETIRACETAM
     Indication: EPILEPSY
     Dosage: 500-0-0 ONE MONTH; 500-0-500; SINCE 17/11/2017 750-750, AFTER 1000-0-1000; 12/11/2017 BEGINS DOWNLOA
     Route: 065
     Dates: start: 20170908
  4. PARACETAMOL [Concomitant]
     Active Substance: ACETAMINOPHEN
     Route: 065
     Dates: start: 20170920
  5. LEXATIN [Concomitant]
     Route: 065
     Dates: start: 20160616
  6. OMEPRAZOL [Concomitant]
     Active Substance: OMEPRAZOLE
     Route: 065
     Dates: start: 20170920
  7. SINTROM [Concomitant]
     Active Substance: ACENOCOUMAROL
     Route: 065
     Dates: start: 20170908

REACTIONS (2)
  - Mixed liver injury [Recovered/Resolved]
  - Hyperbilirubinaemia [Recovered/Resolved]

NARRATIVE: CASE EVENT DATE: 20171017
